FAERS Safety Report 15083805 (Version 1)
Quarter: 2018Q2

REPORT INFORMATION
  Report Type: Spontaneous
  Country: US (occurrence: US)
  Receive Date: 20180628
  Receipt Date: 20180628
  Transmission Date: 20180711
  Serious: No
  Sender: FDA-Public Use
  Company Number: US-GUERBET-US-20180121

PATIENT
  Age: 58 Year
  Sex: Female
  Weight: 117.9 kg

DRUGS (1)
  1. DOTAREM [Suspect]
     Active Substance: GADOTERATE MEGLUMINE
     Indication: NUCLEAR MAGNETIC RESONANCE IMAGING
     Route: 042
     Dates: start: 20180425, end: 20180425

REACTIONS (4)
  - Extravasation [Recovering/Resolving]
  - Injection site pain [Recovering/Resolving]
  - Injection site mass [Recovering/Resolving]
  - Injection site hyperaesthesia [Recovering/Resolving]

NARRATIVE: CASE EVENT DATE: 20180425
